FAERS Safety Report 16187847 (Version 1)
Quarter: 2019Q2

REPORT INFORMATION
  Report Type: Spontaneous
  Country: US (occurrence: US)
  Receive Date: 20190412
  Receipt Date: 20190412
  Transmission Date: 20190711
  Serious: No
  Sender: FDA-Public Use
  Company Number: US-009507513-1904USA005425

PATIENT
  Age: 39 Year
  Sex: Female

DRUGS (11)
  1. LAMOTRIN [Concomitant]
  2. MENOPUR [Concomitant]
     Active Substance: FOLLITROPIN\LUTEINIZING HORMONE
     Indication: INFERTILITY
  3. NOVAREL [Concomitant]
     Active Substance: CHORIOGONADOTROPIN ALFA
     Indication: INFERTILITY
  4. AZITHROMYCIN ANHYDROUS. [Concomitant]
     Active Substance: AZITHROMYCIN ANHYDROUS
  5. PHENOBARBITAL. [Concomitant]
     Active Substance: PHENOBARBITAL
  6. GABAPENTIN. [Concomitant]
     Active Substance: GABAPENTIN
  7. CHOLECALCIFEROL [Concomitant]
     Active Substance: CHOLECALCIFEROL
  8. PNV [Concomitant]
  9. LEUPROLIDE [Concomitant]
     Active Substance: LEUPROLIDE
     Indication: INFERTILITY
  10. FOLLISTIM [Suspect]
     Active Substance: FOLLITROPIN
     Indication: INFERTILITY
     Dosage: 225 UNITS, QD
     Route: 058
     Dates: start: 20190223
  11. FOLIC ACID. [Concomitant]
     Active Substance: FOLIC ACID

REACTIONS (1)
  - Headache [Unknown]

NARRATIVE: CASE EVENT DATE: 20190410
